FAERS Safety Report 6409072-6 (Version None)
Quarter: 2009Q4

REPORT INFORMATION
  Report Type: 
  Country: None (occurrence: None)
  Receive Date: 20091019
  Receipt Date: 20091007
  Transmission Date: 20100525
  Serious: Yes (Hospitalization)
  Sender: FDA-Public Use
  Company Number: 2009-04187

PATIENT
  Age: 81 Year
  Sex: Male
  Weight: 78 kg

DRUGS (3)
  1. VELCADE [Suspect]
     Indication: MULTIPLE MYELOMA
     Dosage: 2.5 MG, INTRAVENOUS
     Route: 042
     Dates: start: 20090724, end: 20090928
  2. DEXAMETHASONE TAB [Suspect]
     Indication: MULTIPLE MYELOMA
     Dosage: 10 MG, ORAL
     Route: 048
     Dates: start: 20090728, end: 20090929
  3. COUMADIN [Concomitant]

REACTIONS (2)
  - CHEST PAIN [None]
  - THROMBOSIS [None]
